FAERS Safety Report 5342128-8 (Version None)
Quarter: 2007Q2

REPORT INFORMATION
  Report Type: 
  Country: None (occurrence: None)
  Receive Date: 20070601
  Receipt Date: 20070523
  Transmission Date: 20071010
  Serious: Yes (Hospitalization)
  Sender: FDA-Public Use
  Company Number: JP-MERCK-0704USA05686

PATIENT
  Age: 72 Year
  Sex: Male
  Weight: 69 kg

DRUGS (10)
  1. HYZAAR [Suspect]
     Indication: HYPERTENSION
     Route: 048
     Dates: start: 20070208, end: 20070418
  2. FUROSEMIDE [Concomitant]
     Route: 048
     Dates: start: 19981007, end: 20070418
  3. EPOGEN [Concomitant]
     Indication: NEPHROGENIC ANAEMIA
     Route: 058
     Dates: start: 20060322, end: 20070418
  4. ALLOPURINOL [Concomitant]
     Indication: HYPERURICAEMIA
     Route: 048
     Dates: start: 19981007, end: 20070418
  5. CILNIDIPINE [Concomitant]
     Indication: HYPERTENSION
     Route: 048
     Dates: start: 20070112, end: 20070418
  6. DILAZEP HYDROCHLORIDE [Concomitant]
     Route: 065
     Dates: start: 19981007, end: 20070418
  7. SODIUM BICARBONATE [Concomitant]
     Indication: HYPERURICAEMIA
     Route: 048
     Dates: start: 20050115, end: 20070418
  8. CALCIUM POLYSTYRENE SULFONATE [Concomitant]
     Indication: HYPERKALAEMIA
     Route: 048
     Dates: start: 20050115, end: 20070418
  9. TEPRENONE [Concomitant]
     Indication: GASTRITIS
     Route: 048
     Dates: start: 20060307, end: 20070418
  10. ALFACALCIDOL [Concomitant]
     Indication: RENAL FAILURE
     Route: 065
     Dates: start: 20060307, end: 20070418

REACTIONS (2)
  - BLOOD CREATINE PHOSPHOKINASE INCREASED [None]
  - RENAL FAILURE CHRONIC [None]
